FAERS Safety Report 18053516 (Version 1)
Quarter: 2020Q3

REPORT INFORMATION
  Report Type: Spontaneous
  Country: US (occurrence: US)
  Receive Date: 20200721
  Receipt Date: 20200721
  Transmission Date: 20201103
  Serious: Yes (Hospitalization)
  Sender: FDA-Public Use
  Company Number: None

PATIENT
  Age: 38 Year
  Sex: Female

DRUGS (5)
  1. PREGABLIN [Concomitant]
     Active Substance: PREGABALIN
  2. HYDROCO/APAP [Concomitant]
     Active Substance: ACETAMINOPHEN\HYDROCODONE
  3. METHOCARBAM [Concomitant]
     Active Substance: METHOCARBAMOL
  4. DIAZEPAM. [Concomitant]
     Active Substance: DIAZEPAM
  5. REPATHA [Suspect]
     Active Substance: EVOLOCUMAB
     Indication: TYPE IIA HYPERLIPIDAEMIA
     Route: 058
     Dates: start: 20170819

REACTIONS (1)
  - Surgery [None]

NARRATIVE: CASE EVENT DATE: 20200720
